FAERS Safety Report 4617726-7 (Version None)
Quarter: 2005Q1

REPORT INFORMATION
  Report Type: 
  Country: None (occurrence: None)
  Receive Date: 20050324
  Receipt Date: 20050315
  Transmission Date: 20050727
  Serious: Yes (Other)
  Sender: FDA-Public Use
  Company Number: BR-ROCHE-398876

PATIENT
  Age: 35 Year
  Sex: Female

DRUGS (1)
  1. TORADOL [Suspect]
     Indication: SURGERY
     Route: 065

REACTIONS (2)
  - DRUG HYPERSENSITIVITY [None]
  - HYPERSENSITIVITY [None]
